FAERS Safety Report 9119619 (Version 1)
Quarter: 2013Q1

REPORT INFORMATION
  Report Type: Spontaneous
  Country: GB (occurrence: GB)
  Receive Date: 20130226
  Receipt Date: 20130226
  Transmission Date: 20140127
  Serious: Yes (Disabling)
  Sender: FDA-Public Use
  Company Number: GB-TEVA-386708ISR

PATIENT
  Age: 35 Year
  Sex: Female
  Weight: 102 kg

DRUGS (5)
  1. VENLAFAXINE [Suspect]
     Indication: DEPRESSION
     Route: 048
     Dates: start: 20111021, end: 201211
  2. CODEINE [Concomitant]
     Indication: PAIN
     Dates: start: 2010
  3. PARACETAMOL [Concomitant]
     Indication: PAIN
     Dates: start: 2010
  4. QUETIAPINE [Concomitant]
     Indication: MOOD SWINGS
     Dosage: EVERY NIGHT (ON)
     Route: 048
     Dates: start: 201205, end: 201208
  5. DIAZEPAM [Concomitant]
     Indication: ANXIETY
     Dosage: INTERMITTENT
     Route: 048
     Dates: start: 2010

REACTIONS (1)
  - Muscle spasms [Recovered/Resolved]
